FAERS Safety Report 18946792 (Version 1)
Quarter: 2021Q1

REPORT INFORMATION
  Report Type: Spontaneous
  Country: US (occurrence: US)
  Receive Date: 20210226
  Receipt Date: 20210226
  Transmission Date: 20210420
  Serious: No
  Sender: FDA-Public Use
  Company Number: US-ALXN-A202102709

PATIENT
  Sex: Female

DRUGS (1)
  1. SOLIRIS [Suspect]
     Active Substance: ECULIZUMAB
     Indication: MYASTHENIA GRAVIS
     Dosage: 1200 MG, UNK
     Route: 065

REACTIONS (5)
  - Nasal dryness [Unknown]
  - Abdominal distension [Unknown]
  - Asthenia [Unknown]
  - Nasal discomfort [Unknown]
  - Alopecia [Unknown]
